FAERS Safety Report 8512271-0 (Version None)
Quarter: 2012Q3

REPORT INFORMATION
  Report Type: 
  Country: None (occurrence: None)
  Receive Date: 20120716
  Receipt Date: 20120703
  Transmission Date: 20120928
  Serious: No
  Sender: FDA-Public Use
  Company Number: US-ASTRAZENECA-2012SE45671

PATIENT
  Age: 36 Year
  Sex: Male

DRUGS (6)
  1. FLEXERIL [Concomitant]
  2. SYMBICORT [Suspect]
     Dosage: UNKNOWN
     Route: 055
     Dates: start: 20101021
  3. LEXAPRO [Concomitant]
  4. ULTRAM [Concomitant]
  5. MOTRIN [Concomitant]
  6. ALBUTEROL [Concomitant]

REACTIONS (5)
  - UPPER RESPIRATORY TRACT INFECTION [None]
  - FATIGUE [None]
  - DERMAL CYST [None]
  - DYSTHYMIC DISORDER [None]
  - MALAISE [None]
